FAERS Safety Report 20893941 (Version 4)
Quarter: 2022Q3

REPORT INFORMATION
  Report Type: Spontaneous
  Country: NZ (occurrence: NZ)
  Receive Date: 20220531
  Receipt Date: 20220901
  Transmission Date: 20221027
  Serious: Yes (Death)
  Sender: FDA-Public Use
  Company Number: NZ-MYLANLABS-2022M1041015

PATIENT
  Sex: Female
  Weight: 64 kg

DRUGS (7)
  1. CLOZARIL [Suspect]
     Active Substance: CLOZAPINE
     Indication: Schizophrenia
     Dosage: 75 MILLIGRAM
     Route: 048
     Dates: start: 20070601
  2. CLOZARIL [Suspect]
     Active Substance: CLOZAPINE
     Dosage: 25 MILLIGRAM, BID (ONE IN THE EVENING TWO AT NIGHT)
     Route: 048
     Dates: start: 20070601, end: 20220510
  3. CLOZARIL [Suspect]
     Active Substance: CLOZAPINE
     Dosage: 75 MILLIGRAM
     Route: 048
     Dates: start: 20070601, end: 20220510
  4. Coloxyl [Concomitant]
     Indication: Constipation
     Dosage: 120 MILLIGRAM, HS (2 TABS AT NIGHT)
     Route: 048
     Dates: end: 20220510
  5. LACTULOSE [Concomitant]
     Active Substance: LACTULOSE
     Indication: Constipation
     Dosage: 10 MILLILITER, QD
     Route: 048
  6. FLUTICASONE PROPIONATE [Concomitant]
     Active Substance: FLUTICASONE PROPIONATE
     Indication: Nasal congestion
     Dosage: 50 MICROGRAM, BID (1 SPRAY RIGHT NOSTRIL TWICE DAILY)
     Route: 045
  7. DOCUSATE SODIUM [Concomitant]
     Active Substance: DOCUSATE SODIUM
     Indication: Constipation
     Dosage: 120 MILLIGRAM (2 PRIOR TO MEAL, LONG TERM FOR 6 YERAS)
     Route: 048

REACTIONS (3)
  - Aortic dissection [Fatal]
  - Cardiac arrest [Fatal]
  - Off label use [Unknown]
